FAERS Safety Report 12262648 (Version 1)
Quarter: 2016Q2

REPORT INFORMATION
  Report Type: Spontaneous
  Country: US (occurrence: None)
  Receive Date: 20160412
  Receipt Date: 20160412
  Transmission Date: 20160815
  Serious: Yes (Life-Threatening, Hospitalization, Disabling)
  Sender: FDA-Public Use
  Company Number: None

PATIENT
  Age: 51 Year
  Sex: Female
  Weight: 70.31 kg

DRUGS (4)
  1. MORPHINE SULFATE. [Concomitant]
     Active Substance: MORPHINE SULFATE
  2. AUGMENTIN [Suspect]
     Active Substance: AMOXICILLIN\CLAVULANATE POTASSIUM
     Indication: PNEUMONIA
     Dosage: 42 TABLET(S) THREE TIMES A DAY TAKEN MY MOUTH
     Route: 048
     Dates: start: 20141125, end: 20141126
  3. KLONIPIN [Concomitant]
     Active Substance: CLONAZEPAM
  4. GABAPENTIN. [Concomitant]
     Active Substance: GABAPENTIN

REACTIONS (25)
  - Erythema [None]
  - Female sexual arousal disorder [None]
  - Complex regional pain syndrome [None]
  - Fatigue [None]
  - Drug dependence [None]
  - Pain [None]
  - Dysuria [None]
  - Addison^s disease [None]
  - Epstein-Barr virus infection [None]
  - Toxic epidermal necrolysis [None]
  - Impaired work ability [None]
  - Stevens-Johnson syndrome [None]
  - Simplex virus test positive [None]
  - Syncope [None]
  - Neuritis [None]
  - Pelvic pain [None]
  - Rash generalised [None]
  - Heart rate increased [None]
  - Blood pressure abnormal [None]
  - Burning sensation [None]
  - Dizziness [None]
  - Eye irritation [None]
  - Impaired driving ability [None]
  - Feeling abnormal [None]
  - Painful defaecation [None]

NARRATIVE: CASE EVENT DATE: 20141128
